FAERS Safety Report 8469436-6 (Version None)
Quarter: 2012Q2

REPORT INFORMATION
  Report Type: 
  Country: None (occurrence: None)
  Receive Date: 20120626
  Receipt Date: 20120619
  Transmission Date: 20120825
  Serious: Yes (Other)
  Sender: FDA-Public Use
  Company Number: US-UCBSA-060047

PATIENT
  Sex: Female

DRUGS (2)
  1. CIMZIA [Suspect]
  2. CIMZIA [Suspect]

REACTIONS (12)
  - MYALGIA [None]
  - THERAPEUTIC RESPONSE DECREASED [None]
  - LYMPHOCYTE COUNT INCREASED [None]
  - NEUTROPHIL COUNT DECREASED [None]
  - WEIGHT DECREASED [None]
  - DIZZINESS [None]
  - WHITE BLOOD CELL COUNT DECREASED [None]
  - MONOCYTE COUNT INCREASED [None]
  - HYPOAESTHESIA [None]
  - VISION BLURRED [None]
  - RED BLOOD CELL COUNT DECREASED [None]
  - PARAESTHESIA [None]
